FAERS Safety Report 19847613 (Version 1)
Quarter: 2021Q3

REPORT INFORMATION
  Report Type: Other
  Country: US (occurrence: US)
  Receive Date: 20210917
  Receipt Date: 20210917
  Transmission Date: 20211014
  Serious: Yes (Hospitalization)
  Sender: FDA-Public Use
  Company Number: US-ROCHE-2697525

PATIENT
  Sex: Male

DRUGS (31)
  1. ACYCLOVIR. [Concomitant]
     Active Substance: ACYCLOVIR
     Route: 048
  2. AMPHOTERICIN B. [Concomitant]
     Active Substance: AMPHOTERICIN B
     Dosage: INJECT 12 ML STERILE WATER INTO AMBISOME VIAL AND SWIRL VIAL TO DISSOLVE. WITHDRAW 8 ML (25 MG) AND
     Dates: end: 20210808
  3. BENZONATATE. [Concomitant]
     Active Substance: BENZONATATE
     Indication: COUGH
     Route: 048
  4. ACETAMINOPHEN. [Concomitant]
     Active Substance: ACETAMINOPHEN
     Route: 048
  5. AMANTADINE HCL [Concomitant]
     Active Substance: AMANTADINE HYDROCHLORIDE
     Dosage: 2.5 ML (25 MG TOTAL) BY 450 ML MOUTH 2 TIMES A DAY
     Route: 048
  6. FOLIC ACID. [Concomitant]
     Active Substance: FOLIC ACID
     Route: 048
  7. MAGNESIUM OXIDE. [Concomitant]
     Active Substance: MAGNESIUM OXIDE
     Route: 048
  8. PREDNISONE. [Concomitant]
     Active Substance: PREDNISONE
     Route: 048
  9. SENNA TABS [Concomitant]
     Active Substance: SENNOSIDES A AND B
     Dosage: 2 TABS 2 TIMES A DAY
     Route: 048
  10. SODIUM CHLORIDE. [Concomitant]
     Active Substance: SODIUM CHLORIDE
  11. LIDOCAINE. [Concomitant]
     Active Substance: LIDOCAINE
     Route: 061
  12. POLYETHYLENE GLYCOL [Concomitant]
     Active Substance: POLYETHYLENE GLYCOLS
     Route: 048
  13. ATOVAQUONE. [Concomitant]
     Active Substance: ATOVAQUONE
     Dosage: 750MG/ 5 ML
     Route: 048
  14. DOCUSATE [Concomitant]
     Active Substance: DOCUSATE
     Dosage: 200 MG BY MOUTH 2 TIMES A DAY
     Route: 048
  15. FERROUS SULFATE. [Concomitant]
     Active Substance: FERROUS SULFATE
     Route: 048
  16. HYDROXYZINE HYDROCHLORIDE. [Concomitant]
     Active Substance: HYDROXYZINE HYDROCHLORIDE
     Route: 048
  17. PROPRANOLOL [Concomitant]
     Active Substance: PROPRANOLOL HYDROCHLORIDE
     Dosage: AS OF 27/SEP/2021: HOLD FOR LOW BLOOD PRESSURE (RE?EVACUATE AT CLINIC FOLLOW UPS)
     Route: 048
  18. CELLCEPT [Suspect]
     Active Substance: MYCOPHENOLATE MOFETIL\MYCOPHENOLATE MOFETIL HYDROCHLORIDE
     Indication: PRODUCT USED FOR UNKNOWN INDICATION
     Route: 048
  19. BISACODYL. [Concomitant]
     Active Substance: BISACODYL
     Dosage: 2 TABLETS (10 MG TOTAL)
     Route: 048
  20. TACROLIMUS. [Concomitant]
     Active Substance: TACROLIMUS
     Route: 048
  21. ALBUTEROL. [Concomitant]
     Active Substance: ALBUTEROL
     Indication: BRONCHOSPASM
  22. ASCORBIC ACID. [Concomitant]
     Active Substance: ASCORBIC ACID
     Route: 048
  23. FINASTERIDE. [Concomitant]
     Active Substance: FINASTERIDE
     Route: 048
  24. SERTRALINE [Concomitant]
     Active Substance: SERTRALINE HYDROCHLORIDE
     Route: 048
  25. VALCYTE [Suspect]
     Active Substance: VALGANCICLOVIR HYDROCHLORIDE
     Indication: LUNG TRANSPLANT
     Route: 048
  26. ALBUTEROL. [Concomitant]
     Active Substance: ALBUTEROL
     Route: 045
  27. METHADONE [Concomitant]
     Active Substance: METHADONE HYDROCHLORIDE
     Dosage: METHADONE 20 MG BY MOUTH AT 8.00 DAILY, AND 20 MG AT 12.00 AND 30 MG AT 20.00 DAILY
     Route: 048
  28. PANTOPRAZOLE [Concomitant]
     Active Substance: PANTOPRAZOLE
     Route: 048
  29. CALCIUM CARBONATE. [Concomitant]
     Active Substance: CALCIUM CARBONATE
     Route: 048
  30. MELATONIN [Concomitant]
     Active Substance: MELATONIN
     Dosage: 2 TABS (10 MG TOTAL) BY MOUTH EVERY BEDTIME
     Route: 048
  31. TACROLIMUS. [Concomitant]
     Active Substance: TACROLIMUS
     Route: 048

REACTIONS (9)
  - Impaired gastric emptying [Unknown]
  - Off label use [Unknown]
  - Staphylococcal bacteraemia [Unknown]
  - Hypotension [Unknown]
  - Pneumonia staphylococcal [Unknown]
  - Shock [Unknown]
  - Anaemia [Unknown]
  - Acute kidney injury [Unknown]
  - Breath sounds abnormal [Unknown]
